FAERS Safety Report 11237715 (Version 3)
Quarter: 2015Q4

REPORT INFORMATION
  Report Type: Spontaneous
  Country: BR (occurrence: BR)
  Receive Date: 20150703
  Receipt Date: 20151002
  Transmission Date: 20160304
  Serious: Yes (Hospitalization)
  Sender: FDA-Public Use
  Company Number: BR-PFIZER INC-2014115929

PATIENT
  Age: 64 Year
  Sex: Male
  Weight: 82 kg

DRUGS (8)
  1. SUTENT [Suspect]
     Active Substance: SUNITINIB MALATE
     Dosage: UNK
     Route: 048
     Dates: end: 20150724
  2. FERROUS SULFATE [Suspect]
     Active Substance: FERROUS SULFATE\FERROUS SULFATE, DRIED
     Dosage: UNK; STRENGTH 300 MG
  3. IRON [Concomitant]
     Active Substance: IRON
     Dosage: 60 MG, UNK
  4. VONAU [Concomitant]
     Active Substance: ONDANSETRON HYDROCHLORIDE
     Dosage: UNK
  5. LEVOTHYROXINE. [Concomitant]
     Active Substance: LEVOTHYROXINE
     Dosage: UNK
  6. OMEPRAZOLE. [Concomitant]
     Active Substance: OMEPRAZOLE
     Dosage: UNK
  7. PREDNISONE. [Concomitant]
     Active Substance: PREDNISONE
     Dosage: UNK
  8. SUTENT [Suspect]
     Active Substance: SUNITINIB MALATE
     Indication: METASTATIC RENAL CELL CARCINOMA
     Dosage: 50 MG, ONCE A DAY, CYCLIC (2 PER 1)
     Route: 048
     Dates: start: 201304, end: 201506

REACTIONS (22)
  - Dysstasia [Unknown]
  - Fatigue [Unknown]
  - Back pain [Unknown]
  - Blood glucose increased [Unknown]
  - Constipation [Not Recovered/Not Resolved]
  - Nausea [Unknown]
  - Decreased appetite [Unknown]
  - Swelling [Unknown]
  - Malaise [Unknown]
  - Aphthous ulcer [Unknown]
  - Anal fistula [Not Recovered/Not Resolved]
  - Vision blurred [Unknown]
  - Central nervous system lesion [Unknown]
  - Abdominal pain upper [Not Recovered/Not Resolved]
  - Oral mucosal blistering [Unknown]
  - Anaemia [Not Recovered/Not Resolved]
  - Pituitary tumour benign [Unknown]
  - Dizziness [Not Recovered/Not Resolved]
  - Purulence [Unknown]
  - Dyspnoea [Unknown]
  - Diarrhoea [Unknown]
  - Haematoma [Unknown]

NARRATIVE: CASE EVENT DATE: 201407
